FAERS Safety Report 26051775 (Version 2)
Quarter: 2025Q4

REPORT INFORMATION
  Report Type: Report from Study
  Country: CA (occurrence: CA)
  Receive Date: 20251117
  Receipt Date: 20251124
  Transmission Date: 20260118
  Serious: Yes (Hospitalization, Disabling)
  Sender: ABBVIE
  Company Number: CA-ABBVIE-6548700

PATIENT
  Age: 65 Year
  Sex: Female
  Weight: 57.3 kg

DRUGS (23)
  1. FOSCARBIDOPA\FOSLEVODOPA [Suspect]
     Active Substance: FOSCARBIDOPA\FOSLEVODOPA
     Indication: Parkinson^s disease
     Dosage: CONTINUOUS RATE PUMP SETTING BASE 0.41 ML/H?CONTINUOUS RATE PUMP SETTING HIGH 0.44 ML/H?CONTINUOU...
     Route: 058
     Dates: start: 20250310, end: 20250311
  2. FOSCARBIDOPA\FOSLEVODOPA [Suspect]
     Active Substance: FOSCARBIDOPA\FOSLEVODOPA
     Dosage: CONTINUOUS RATE PUMP SETTING BASE 0.40 ML/H?CONTINUOUS RATE PUMP SETTING HIGH 0.44 ML/H?CONTINUOU...
     Route: 058
     Dates: start: 20250311, end: 20250320
  3. FOSCARBIDOPA\FOSLEVODOPA [Suspect]
     Active Substance: FOSCARBIDOPA\FOSLEVODOPA
     Dosage: CONTINUOUS RATE PUMP SETTING BASE 0.40 ML/H?CONTINUOUS RATE PUMP SETTING HIGH 0.44 ML/H?CONTINUOU...
     Route: 058
     Dates: start: 20250320, end: 20250408
  4. FOSCARBIDOPA\FOSLEVODOPA [Suspect]
     Active Substance: FOSCARBIDOPA\FOSLEVODOPA
     Dosage: CONTINUOUS RATE PUMP SETTING BASE 0.42 ML/H?CONTINUOUS RATE PUMP SETTING HIGH 0.46 ML/H?CONTINUOU...
     Route: 058
     Dates: start: 20250408, end: 20250521
  5. FOSCARBIDOPA\FOSLEVODOPA [Suspect]
     Active Substance: FOSCARBIDOPA\FOSLEVODOPA
     Dosage: CONTINUOUS RATE PUMP SETTING BASE 0.45 ML/H?CONTINUOUS RATE PUMP SETTING HIGH 0.49 ML/H?CONTINUOU...
     Route: 058
     Dates: start: 20250521, end: 20250717
  6. FOSCARBIDOPA\FOSLEVODOPA [Suspect]
     Active Substance: FOSCARBIDOPA\FOSLEVODOPA
     Dosage: CONTINUOUS RATE PUMP SETTING BASE 0.49 ML/H?CONTINUOUS RATE PUMP SETTING HIGH 0.51 ML/H?CONTINUOU...
     Route: 058
     Dates: start: 20250717, end: 20250917
  7. FOSCARBIDOPA\FOSLEVODOPA [Suspect]
     Active Substance: FOSCARBIDOPA\FOSLEVODOPA
     Dosage: CONTINUOUS RATE PUMP SETTING BASE 0.51 ML/H?CONTINUOUS RATE PUMP SETTING HIGH 0.53 ML/H?CONTINUOU...
     Route: 058
     Dates: start: 20250917
  8. ASPIRIN [Concomitant]
     Active Substance: ASPIRIN
     Indication: Cardiovascular event prophylaxis
     Route: 048
     Dates: start: 2017, end: 20251110
  9. ADVIL [Concomitant]
     Active Substance: IBUPROFEN
     Indication: Osteoarthritis
     Dosage: TIME INTERVAL: AS NECESSARY
     Route: 048
     Dates: start: 1999
  10. ADVIL [Concomitant]
     Active Substance: IBUPROFEN
     Indication: Osteoarthritis
     Dosage: TIME INTERVAL: AS NECESSARY
     Route: 048
     Dates: start: 20250818
  11. FISH OIL [Concomitant]
     Active Substance: FISH OIL
     Indication: Nutritional supplementation
     Route: 048
     Dates: start: 2005
  12. HALIBUT LIVER OIL [Concomitant]
     Active Substance: HALIBUT LIVER OIL
     Indication: Nutritional supplementation
     Route: 048
     Dates: start: 2005
  13. MAGNESIUM [Concomitant]
     Active Substance: MAGNESIUM
     Indication: Restless legs syndrome
     Route: 048
     Dates: start: 2005
  14. VAGIFEM [Concomitant]
     Active Substance: ESTRADIOL
     Indication: Vulvovaginal dryness
     Dosage: INTRAVAGINAL
     Dates: start: 2006
  15. CALCIUM\MAGNESIUM [Concomitant]
     Active Substance: CALCIUM\MAGNESIUM
     Indication: Osteoporosis
     Route: 048
     Dates: start: 2020
  16. VITAMIN D3 [Concomitant]
     Active Substance: CHOLECALCIFEROL
     Indication: Osteoporosis
     Route: 048
     Dates: start: 2020
  17. PROBIOTICS NOS [Concomitant]
     Active Substance: PROBIOTICS NOS
     Indication: Constipation
     Route: 048
     Dates: start: 2005
  18. HERBALS\TURMERIC [Concomitant]
     Active Substance: HERBALS\TURMERIC
     Indication: Nutritional supplementation
     Route: 048
     Dates: start: 2005
  19. VITAMIN B [Concomitant]
     Active Substance: VITAMIN B
     Indication: Nutritional supplementation
     Route: 048
     Dates: start: 2005
  20. VITAMIN C [Concomitant]
     Active Substance: ASCORBIC ACID
     Indication: Nutritional supplementation
     Route: 048
     Dates: start: 2005
  21. ZINC GLUCONATE [Concomitant]
     Active Substance: ZINC GLUCONATE
     Indication: Nutritional supplementation
     Route: 048
     Dates: start: 2005
  22. GLYCERIN SUPPOSITORY [Concomitant]
     Active Substance: GLYCERIN
     Indication: Constipation
     Dosage: TIME INTERVAL: AS NECESSARY
     Route: 054
     Dates: start: 2005
  23. SINEMET [Concomitant]
     Active Substance: CARBIDOPA\LEVODOPA
     Indication: Parkinson^s disease
     Dosage: TIME INTERVAL: AS NECESSARY
     Route: 048
     Dates: start: 20250506

REACTIONS (2)
  - Atrial fibrillation [Recovered/Resolved]
  - Acute coronary syndrome [Recovered/Resolved]

NARRATIVE: CASE EVENT DATE: 20251107
